FAERS Safety Report 8785802 (Version 1)
Quarter: 2012Q4

REPORT INFORMATION
  Report Type: 
  Country: FR (occurrence: FR)
  Receive Date: 20120914
  Receipt Date: 20120914
  Transmission Date: 20130627
  Serious: Yes (Hospitalization)
  Sender: FDA-Public Use
  Company Number: PHHY2012FR079313

PATIENT
  Age: 89 None
  Sex: Female

DRUGS (10)
  1. EXELON PATCH [Suspect]
     Indication: DEMENTIA ALZHEIMER^S TYPE
     Dosage: 9.5 mg/24 hours
     Route: 062
     Dates: start: 201112, end: 201208
  2. AMLOR [Suspect]
     Dosage: 1 DF, daily
     Route: 048
  3. CRESTOR [Suspect]
     Dosage: 1 DF, daily
     Route: 048
  4. DEROXAT [Concomitant]
     Dosage: 1 DF, daily
     Route: 048
  5. DIGOXINE [Concomitant]
     Dosage: 0.25 mg, daily
     Route: 048
  6. TOCO [Concomitant]
     Dosage: 1 DF, daily
     Route: 048
  7. KARDEGIC [Concomitant]
     Dosage: 1 DF, daily
     Route: 048
  8. LEVOTHYROX [Concomitant]
     Dosage: 1 DF, daily
     Route: 048
  9. PULMICORT [Concomitant]
     Dosage: 2 inhalations twice daily
  10. VENTOLINE [Concomitant]
     Dosage: 2 inhalations 3 times daily

REACTIONS (4)
  - Acute respiratory failure [Unknown]
  - Wheezing [Unknown]
  - Rhonchi [Unknown]
  - Asthma [Unknown]
